FAERS Safety Report 7883975-8 (Version None)
Quarter: 2011Q4

REPORT INFORMATION
  Report Type: 
  Country: None (occurrence: None)
  Receive Date: 20111102
  Receipt Date: 20111020
  Transmission Date: 20120403
  Serious: Yes (Hospitalization, Other)
  Sender: FDA-Public Use
  Company Number: PHNR2007AU02216

PATIENT
  Sex: Male

DRUGS (15)
  1. OSTELIN [Concomitant]
     Dosage: UNK UKN, QD
     Route: 048
  2. DIAZEPAM [Concomitant]
     Dosage: 5 MG, BID
     Route: 048
  3. CHLORPROMAZINE [Concomitant]
     Dosage: 250 MG TDS + 50 MG -100 MG PRN
     Route: 048
  4. ZUCLOPENTHIXOL [Concomitant]
  5. MIRTAZAPINE [Concomitant]
     Dosage: 30 MG, QD
     Route: 048
  6. ATORVASTATIN [Concomitant]
     Dosage: 10 MG, QD
     Route: 048
  7. CLOZARIL [Suspect]
     Dosage: 900 MG
     Dates: start: 19931110
  8. OLANZAPINE [Concomitant]
  9. FERROUS SULFATE TAB [Concomitant]
     Dosage: 325 MG, QD
     Route: 048
  10. FLUVOXAMINE MALEATE [Concomitant]
  11. CLOZARIL [Suspect]
     Dosage: 800-900 MG/DAY
     Dates: end: 20030501
  12. CLOZAPINE [Suspect]
     Dosage: (500MG MANE AND 550MG NOCTE)
  13. QUETIAPINE [Concomitant]
     Dosage: 800 MG, BID
     Route: 048
  14. LITHIUM CITRATE [Concomitant]
  15. CLOZARIL [Suspect]
     Indication: SCHIZOPHRENIA
     Dosage: 1050 MG
     Dates: start: 19931005

REACTIONS (17)
  - SCAPULA FRACTURE [None]
  - BACK PAIN [None]
  - PNEUMOTHORAX [None]
  - SUICIDE ATTEMPT [None]
  - X-RAY LIMB ABNORMAL [None]
  - PSYCHOTIC DISORDER [None]
  - SPINAL FRACTURE [None]
  - RIB FRACTURE [None]
  - COMPUTERISED TOMOGRAM ABNORMAL [None]
  - NEUTROPHIL COUNT DECREASED [None]
  - SCHIZOPHRENIA [None]
  - SUICIDAL IDEATION [None]
  - NEUTROPENIA [None]
  - POLYDIPSIA [None]
  - ROAD TRAFFIC ACCIDENT [None]
  - WHITE BLOOD CELL COUNT DECREASED [None]
  - SKELETAL INJURY [None]
